FAERS Safety Report 9490167 (Version 2)
Quarter: 2013Q3

REPORT INFORMATION
  Report Type: Spontaneous
  Country: US (occurrence: US)
  Receive Date: 20130830
  Receipt Date: 20130916
  Transmission Date: 20140515
  Serious: Yes (Other)
  Sender: FDA-Public Use
  Company Number: US-AMGEN-USASP2013060597

PATIENT
  Age: 83 Year
  Sex: Male
  Weight: 78.46 kg

DRUGS (3)
  1. PROCRIT [Suspect]
     Indication: ANAEMIA MACROCYTIC
     Dosage: UNK UNK, QWK
     Route: 042
     Dates: start: 20120822
  2. ARANESP [Concomitant]
     Indication: ANAEMIA
     Dosage: UNK
     Route: 065
  3. DESFERAL [Suspect]
     Indication: IRON OVERLOAD
     Dosage: 1000 UNK, QWK
     Route: 065
     Dates: start: 20110713

REACTIONS (5)
  - Oral discomfort [Not Recovered/Not Resolved]
  - Nasal discomfort [Not Recovered/Not Resolved]
  - Paraesthesia oral [Not Recovered/Not Resolved]
  - Lichen planus [Not Recovered/Not Resolved]
  - Local swelling [Unknown]
